FAERS Safety Report 11337627 (Version 1)
Quarter: 2015Q3

REPORT INFORMATION
  Report Type: Spontaneous
  Country: US (occurrence: US)
  Receive Date: 20150803
  Receipt Date: 20150803
  Transmission Date: 20151125
  Serious: No
  Sender: FDA-Public Use
  Company Number: US-ELI_LILLY_AND_COMPANY-US200910002969

PATIENT
  Age: 65 Year
  Sex: Female

DRUGS (2)
  1. ZYPREXA [Suspect]
     Active Substance: OLANZAPINE
     Dosage: 1 D/F, UNK
     Dates: start: 2007
  2. METFORMIN [Concomitant]
     Active Substance: METFORMIN HYDROCHLORIDE
     Dosage: UNK, 4/D

REACTIONS (13)
  - Weight increased [Unknown]
  - Hand deformity [Unknown]
  - Nervousness [Unknown]
  - Neuropathy peripheral [Unknown]
  - Diabetes mellitus inadequate control [Unknown]
  - Medication error [Unknown]
  - Tremor [Unknown]
  - Gait disturbance [Unknown]
  - Diabetes mellitus [Unknown]
  - Malaise [Unknown]
  - Thinking abnormal [Unknown]
  - Impaired driving ability [Unknown]
  - Impaired work ability [Unknown]

NARRATIVE: CASE EVENT DATE: 2008
